FAERS Safety Report 4675263-8 (Version None)
Quarter: 2005Q2

REPORT INFORMATION
  Report Type: 
  Country: None (occurrence: None)
  Receive Date: 20050527
  Receipt Date: 20050519
  Transmission Date: 20051028
  Serious: Yes (Hospitalization)
  Sender: FDA-Public Use
  Company Number: US-JNJFOC-20050505046

PATIENT
  Sex: Female

DRUGS (6)
  1. INFLIXIMAB [Suspect]
     Indication: RHEUMATOID ARTHRITIS
     Route: 042
  2. FOSAMAX [Concomitant]
  3. BENICAR [Concomitant]
  4. LEVOXYL [Concomitant]
  5. METHOTREXATE [Concomitant]
  6. ASPIRIN [Concomitant]

REACTIONS (1)
  - ARTERIAL STENT INSERTION [None]
